FAERS Safety Report 25708094 (Version 1)
Quarter: 2025Q3

REPORT INFORMATION
  Report Type: Spontaneous
  Country: GB (occurrence: GB)
  Receive Date: 20250820
  Receipt Date: 20250820
  Transmission Date: 20251021
  Serious: Yes (Other)
  Sender: ELI LILLY AND COMPANY
  Company Number: GB-MHRA-TPP6397969C10463146YC1754987546481

PATIENT
  Age: 74 Year
  Sex: Male
  Weight: 81 kg

DRUGS (18)
  1. DULOXETINE HYDROCHLORIDE [Suspect]
     Active Substance: DULOXETINE HYDROCHLORIDE
     Indication: Ill-defined disorder
     Dosage: 60 MG, DAILY
     Route: 065
     Dates: start: 20250805
  2. EMLA [Concomitant]
     Active Substance: LIDOCAINE\PRILOCAINE
     Indication: Ill-defined disorder
     Route: 061
     Dates: start: 20250711, end: 20250712
  3. BETAMETHASONE VALERATE [Concomitant]
     Active Substance: BETAMETHASONE VALERATE
     Indication: Ill-defined disorder
     Dosage: UNK, BID (APPLY TWICE DAILY)
     Route: 065
     Dates: start: 20250805, end: 20250812
  4. PROCHLORPERAZINE [Concomitant]
     Active Substance: PROCHLORPERAZINE
     Indication: Ill-defined disorder
     Route: 065
     Dates: start: 20250811
  5. TADALAFIL [Concomitant]
     Active Substance: TADALAFIL
     Indication: Ill-defined disorder
     Route: 065
     Dates: start: 20241002
  6. ISOPROPYL MYRISTATE\MINERAL OIL [Concomitant]
     Active Substance: ISOPROPYL MYRISTATE\MINERAL OIL
     Indication: Ill-defined disorder
     Route: 065
     Dates: start: 20250121
  7. CALCIUM CARBONATE\CHOLECALCIFEROL [Concomitant]
     Active Substance: CALCIUM CARBONATE\CHOLECALCIFEROL
     Indication: Ill-defined disorder
     Dosage: 1 DOSAGE FORM, BID (TAKE ONE TABLET TWICE A DAY)
     Route: 065
     Dates: start: 20250324
  8. ALOGLIPTIN [Concomitant]
     Active Substance: ALOGLIPTIN
     Indication: Ill-defined disorder
     Dosage: 1 DOSAGE FORM, EACH MORNING (TAKE ONE TABLET IN THE MORNING - IN DOSSETT)
     Route: 065
     Dates: start: 20250324
  9. ATORVASTATIN [Concomitant]
     Active Substance: ATORVASTATIN
     Indication: Ill-defined disorder
     Dosage: 1 DOSAGE FORM, DAILY (TAKE ONE TABLET ONCE DAILY)
     Route: 065
     Dates: start: 20250324
  10. BISOPROLOL [Concomitant]
     Active Substance: BISOPROLOL
     Indication: Ill-defined disorder
     Dosage: 1 DOSAGE FORM, EACH MORNING (TAKE ONE TABLET ONCE IN THE MORNING - IN DOSSETT)
     Route: 065
     Dates: start: 20250324
  11. CLOPIDOGREL [Concomitant]
     Active Substance: CLOPIDOGREL BISULFATE
     Indication: Ill-defined disorder
     Dosage: 1 DOSAGE FORM, DAILY (TAKE ONE TABLET ONCE DAILY)
     Route: 065
     Dates: start: 20250324
  12. EMPAGLIFLOZIN [Concomitant]
     Active Substance: EMPAGLIFLOZIN
     Indication: Ill-defined disorder
     Dosage: 1 DOSAGE FORM, DAILY (TAKE ONE TABLET ONCE DAILY)
     Route: 065
     Dates: start: 20250324
  13. FINASTERIDE [Concomitant]
     Active Substance: FINASTERIDE
     Indication: Ill-defined disorder
     Dosage: 1 DOSAGE FORM, EACH MORNING (TAKE ONE TABLET ONCE IN THE MORNING - IN DOSSETT)
     Route: 065
     Dates: start: 20250324
  14. LANSOPRAZOLE [Concomitant]
     Active Substance: LANSOPRAZOLE
     Indication: Ill-defined disorder
     Dosage: 1 DOSAGE FORM, EACH MORNING (TAKE ONE TABLET ONCE IN THE MORNING - IN DOSSETT)
     Route: 065
     Dates: start: 20250324
  15. ACETAMINOPHEN [Concomitant]
     Active Substance: ACETAMINOPHEN
     Indication: Ill-defined disorder
     Dosage: 2 DOSAGE FORM, BID (TAKE TWO CAPSULES TWICE DAILY (MORNING AND NIGHT)
     Route: 065
     Dates: start: 20250324
  16. SUKKARTO SR [Concomitant]
     Indication: Ill-defined disorder
     Route: 065
     Dates: start: 20250324
  17. TAMSULOSIN HYDROCHLORIDE [Concomitant]
     Active Substance: TAMSULOSIN HYDROCHLORIDE
     Indication: Ill-defined disorder
     Dosage: 1 DOSAGE FORM, EACH MORNING (TAKE ONE TABLET ONCE IN THE MORNING - IN DOSSETT)
     Route: 065
     Dates: start: 20250324
  18. NIACINAMIDE\PYRIDOXINE HYDROCHLORIDE\RIBOFLAVIN\THIAMINE HYDROCHLORIDE [Concomitant]
     Active Substance: NIACINAMIDE\PYRIDOXINE HYDROCHLORIDE\RIBOFLAVIN\THIAMINE HYDROCHLORIDE
     Indication: Ill-defined disorder
     Dosage: 1 DOSAGE FORM, BID  (TAKE ONE TABLET TWICE DAILY)
     Route: 065
     Dates: start: 20250324

REACTIONS (1)
  - Hiccups [Not Recovered/Not Resolved]
